FAERS Safety Report 19368980 (Version 2)
Quarter: 2022Q2

REPORT INFORMATION
  Report Type: Spontaneous
  Country: US (occurrence: None)
  Receive Date: 20210602
  Receipt Date: 20220504
  Transmission Date: 20220720
  Serious: No
  Sender: FDA-Public Use
  Company Number: US-ROCHE-2680627

PATIENT
  Sex: Female

DRUGS (1)
  1. OCREVUS [Suspect]
     Active Substance: OCRELIZUMAB
     Indication: Relapsing multiple sclerosis
     Dosage: ON 19/MAY/2020, SHE RECEIVED SUBSEQUENT DOSE OF INTRAVENOUS OCRELIZUMAB INFUSION 600 MG.
     Route: 042
     Dates: start: 201801

REACTIONS (2)
  - Bladder injury [Unknown]
  - Maternal exposure during pregnancy [Unknown]
